FAERS Safety Report 4353519-6 (Version None)
Quarter: 2004Q2

REPORT INFORMATION
  Report Type: 
  Country: None (occurrence: None)
  Receive Date: 20040505
  Receipt Date: 20040416
  Transmission Date: 20050107
  Serious: Yes (Hospitalization)
  Sender: FDA-Public Use
  Company Number: US-ROCHE-364845

PATIENT
  Sex: Male

DRUGS (1)
  1. BUMEX [Suspect]
     Indication: DRUG USE FOR UNKNOWN INDICATION
     Dosage: PATIENT REPORTED TO HAVE STARTED TREATMENT IN 2004.
     Route: 048
     Dates: end: 20040417

REACTIONS (2)
  - DEHYDRATION [None]
  - DIABETES MELLITUS [None]
